FAERS Safety Report 21444484 (Version 1)
Quarter: 2022Q4

REPORT INFORMATION
  Report Type: Spontaneous
  Country: US (occurrence: None)
  Receive Date: 20221010
  Receipt Date: 20221010
  Transmission Date: 20230112
  Serious: No
  Sender: FDA-Public Use
  Company Number: None

PATIENT
  Age: 40 Year
  Sex: Female

DRUGS (1)
  1. HUMIRA [Suspect]
     Active Substance: ADALIMUMAB
     Indication: Psoriatic arthropathy
     Dosage: 40 MG EVERY 14 DAYS SC?
     Route: 058
     Dates: start: 202206

REACTIONS (2)
  - Product contamination physical [None]
  - Product dose omission issue [None]

NARRATIVE: CASE EVENT DATE: 20221009
